FAERS Safety Report 6145919-9 (Version None)
Quarter: 2009Q2

REPORT INFORMATION
  Report Type: 
  Country: None (occurrence: None)
  Receive Date: 20090407
  Receipt Date: 20090226
  Transmission Date: 20091009
  Serious: No
  Sender: FDA-Public Use
  Company Number: US-BAYER-200914612NA

PATIENT
  Age: 34 Year
  Sex: Female
  Weight: 73 kg

DRUGS (1)
  1. MIRENA [Suspect]
     Indication: CONTRACEPTION
     Dosage: CONTINOUS
     Route: 015
     Dates: start: 20081201

REACTIONS (3)
  - EYE DISORDER [None]
  - EYE PRURITUS [None]
  - OCULAR HYPERAEMIA [None]
